FAERS Safety Report 5018134-X (Version None)
Quarter: 2006Q2

REPORT INFORMATION
  Report Type: 
  Country: None (occurrence: None)
  Receive Date: 20060525
  Receipt Date: 20060518
  Transmission Date: 20061013
  Serious: Yes (Life-Threatening)
  Sender: FDA-Public Use
  Company Number: 200610150BBE

PATIENT
  Age: 30 Year
  Sex: Female
  Weight: 80.7403 kg

DRUGS (1)
  1. GAMUNEX [Suspect]
     Indication: THROMBOCYTOPENIA
     Dosage: INTRAVENOUS
     Route: 042
     Dates: start: 20060509, end: 20060512

REACTIONS (4)
  - CHEST PAIN [None]
  - CHILLS [None]
  - DYSPNOEA [None]
  - NECK PAIN [None]
